FAERS Safety Report 21599042 (Version 4)
Quarter: 2023Q1

REPORT INFORMATION
  Report Type: Spontaneous
  Country: US (occurrence: US)
  Receive Date: 20221115
  Receipt Date: 20230109
  Transmission Date: 20230417
  Serious: No
  Sender: FDA-Public Use
  Company Number: US-Calliditas-2022CAL00512

PATIENT
  Age: 64 Year
  Sex: Male
  Weight: 135 kg

DRUGS (3)
  1. TARPEYO [Suspect]
     Active Substance: BUDESONIDE
     Indication: IgA nephropathy
     Dosage: 16 MG (4 CAPSULES) DAILY
     Route: 048
     Dates: start: 20221026
  2. CHOLESTEROL MANAGER [Concomitant]
  3. LASIX [Concomitant]
     Active Substance: FUROSEMIDE

REACTIONS (7)
  - Pain in extremity [Recovered/Resolved]
  - Cough [Recovered/Resolved]
  - Secretion discharge [Recovered/Resolved]
  - Paranasal sinus hypersecretion [Recovered/Resolved]
  - Nasopharyngitis [Recovered/Resolved]
  - Swelling [Recovered/Resolved]
  - Weight increased [Recovered/Resolved]

NARRATIVE: CASE EVENT DATE: 20221027
